FAERS Safety Report 23984654 (Version 2)
Quarter: 2024Q4

REPORT INFORMATION
  Report Type: Spontaneous
  Country: US (occurrence: US)
  Receive Date: 20240618
  Receipt Date: 20241125
  Transmission Date: 20250115
  Serious: Yes (Hospitalization, Other)
  Sender: CATALYST PHARMA
  Company Number: US-CATALYST PHARMACEUTICALS, INC-US-CATA-24-00531

PATIENT
  Sex: Female
  Weight: 56.7 kg

DRUGS (9)
  1. FIRDAPSE [Suspect]
     Active Substance: AMIFAMPRIDINE PHOSPHATE
     Indication: Myasthenic syndrome
     Dosage: 1 TABLET THREE TIMES DAILY FOR 14 DAYS, THEN INCREASE BY HALF A TABLET EVERY 7 DAYS TO A MAX DOSE OF
     Route: 048
     Dates: start: 20220922, end: 20230208
  2. FIRDAPSE [Suspect]
     Active Substance: AMIFAMPRIDINE PHOSPHATE
     Dosage: 8 TABLETS TOTAL IN DIVIDED DOSES AS TOLERATED
     Route: 048
     Dates: start: 20230208
  3. CLONAZEPAM [Concomitant]
     Active Substance: CLONAZEPAM
     Indication: Tinnitus
     Dosage: 2 MG 3X DAILY
     Route: 065
  4. DOXEPIN [Concomitant]
     Active Substance: DOXEPIN
     Indication: Insomnia
     Dosage: 50 MG AT BEDTIME
     Route: 065
  5. GABAPENTIN [Concomitant]
     Active Substance: GABAPENTIN
     Indication: Neuropathy peripheral
     Dosage: 300 MG TWICE DAILY
     Route: 065
  6. GAMMAGARD [Concomitant]
     Active Substance: HUMAN IMMUNOGLOBULIN G
     Indication: Product used for unknown indication
     Dosage: 10 G 1X A MONTH
     Route: 065
  7. LIPITOR [Concomitant]
     Active Substance: ATORVASTATIN CALCIUM
     Indication: Hyperlipidaemia
     Dosage: 20 MG DAILY
     Route: 065
  8. VITAMIN B12 [Concomitant]
     Active Substance: CYANOCOBALAMIN
     Indication: Hypovitaminosis
     Dosage: 2500 MCG DAILY
     Route: 065
  9. VITAMIN D [Concomitant]
     Active Substance: VITAMIN D NOS
     Indication: Hypovitaminosis
     Dosage: 50,000 UNITS ONCE A WEEK
     Route: 065

REACTIONS (8)
  - Wrist fracture [Not Recovered/Not Resolved]
  - Craniofacial fracture [Unknown]
  - Eye contusion [Unknown]
  - Gait disturbance [Unknown]
  - Skin tightness [Not Recovered/Not Resolved]
  - Blepharospasm [Not Recovered/Not Resolved]
  - Haemoglobin decreased [Recovered/Resolved]
  - Skin injury [Recovered/Resolved]

NARRATIVE: CASE EVENT DATE: 20240101
